FAERS Safety Report 22055231 (Version 1)
Quarter: 2023Q1

REPORT INFORMATION
  Report Type: Spontaneous
  Country: US (occurrence: None)
  Receive Date: 20230301
  Receipt Date: 20230301
  Transmission Date: 20230418
  Serious: Yes (Other)
  Sender: FDA-Public Use
  Company Number: None

PATIENT
  Age: 73 Year
  Sex: Female

DRUGS (20)
  1. PRALUENT [Suspect]
     Active Substance: ALIROCUMAB
     Indication: Hyperlipidaemia
     Dosage: OTHER FREQUENCY : Q 2 WEEKS;?
     Route: 058
     Dates: start: 20210929
  2. Chlorhexidine oral rinse [Concomitant]
  3. Hydrocodone/Acetaminophen 5/325mg [Concomitant]
  4. KETOCONAZOLE [Concomitant]
     Active Substance: KETOCONAZOLE
  5. CLONAZEPAM [Concomitant]
     Active Substance: CLONAZEPAM
  6. ASPIRIN [Concomitant]
     Active Substance: ASPIRIN
  7. CETIRIZINE [Concomitant]
     Active Substance: CETIRIZINE HYDROCHLORIDE
  8. BEANO [Concomitant]
     Active Substance: ASPERGILLUS NIGER .ALPHA.-GALACTOSIDASE
  9. PEPTO-BISMOL [Concomitant]
     Active Substance: BISMUTH SUBSALICYLATE
  10. PROBIOTICS NOS [Concomitant]
     Active Substance: PROBIOTICS NOS
  11. SUMATRIPTAN [Concomitant]
     Active Substance: SUMATRIPTAN
  12. MESALAMINE [Concomitant]
     Active Substance: MESALAMINE
  13. FERROUS GLUCONATE [Concomitant]
     Active Substance: FERROUS GLUCONATE
  14. Hydrocortisone rectal cream 2.5 % [Concomitant]
  15. Meclizine 25mg [Concomitant]
  16. PROTONIX [Concomitant]
     Active Substance: PANTOPRAZOLE SODIUM
  17. ONDANSETRON [Concomitant]
     Active Substance: ONDANSETRON
  18. Asacol HD 800mg [Concomitant]
  19. Breo Ellipta 100-25 [Concomitant]
  20. ALBUTEROL [Concomitant]
     Active Substance: ALBUTEROL

REACTIONS (8)
  - Rash pruritic [None]
  - Rash [None]
  - Pain [None]
  - Nausea [None]
  - Fatigue [None]
  - Malaise [None]
  - Treatment noncompliance [None]
  - COVID-19 [None]

NARRATIVE: CASE EVENT DATE: 20230227
